FAERS Safety Report 8570267-7 (Version None)
Quarter: 2012Q3

REPORT INFORMATION
  Report Type: 
  Country: None (occurrence: None)
  Receive Date: 20120803
  Receipt Date: 20120720
  Transmission Date: 20120928
  Serious: Yes (Other)
  Sender: FDA-Public Use
  Company Number: CHPA2012US016331

PATIENT
  Age: 88 Year
  Sex: Female

DRUGS (1)
  1. EX-LAX CHOCOLATE PIECES [Suspect]
     Indication: CONSTIPATION
     Dosage: 1-2 PIECES, QPM
     Route: 048

REACTIONS (10)
  - INCORRECT DRUG ADMINISTRATION DURATION [None]
  - CHONDROPATHY [None]
  - VISUAL ACUITY REDUCED [None]
  - UNDERDOSE [None]
  - ANKLE FRACTURE [None]
  - URINARY TRACT INFECTION [None]
  - FALL [None]
  - LIMB INJURY [None]
  - OEDEMA PERIPHERAL [None]
  - GAIT DISTURBANCE [None]
